FAERS Safety Report 18899678 (Version 1)
Quarter: 2021Q1

REPORT INFORMATION
  Report Type: Spontaneous
  Country: US (occurrence: US)
  Receive Date: 20210216
  Receipt Date: 20210216
  Transmission Date: 20210420
  Serious: No
  Sender: FDA-Public Use
  Company Number: US-PFIZER INC-2017475873

PATIENT
  Age: 70 Year
  Sex: Female

DRUGS (10)
  1. LYRICA [Suspect]
     Active Substance: PREGABALIN
     Dosage: 225 MG, DAILY (75 MG CAPSULE TAKE ONE CAPSULE IN AM AND TWO CAPS AT NIGHT)
     Route: 048
     Dates: start: 20100104
  2. ESGIC [Concomitant]
     Active Substance: ACETAMINOPHEN\BUTALBITAL\CAFFEINE
     Dosage: AS NEEDED (50?325?40 MG, ORAL TABLETTAKE ONE TABLET BY MOUTH EVERY FOUR HOURS AS NEEDED )
     Route: 048
     Dates: start: 20100114
  3. CALCIUM [Concomitant]
     Active Substance: CALCIUM
     Dosage: 500 MG, 3X/DAY
     Route: 048
     Dates: start: 20170526
  4. PREVACID [Concomitant]
     Active Substance: LANSOPRAZOLE
     Dosage: 30 MG, 1X/DAY
     Route: 048
     Dates: start: 20091202
  5. VALIUM [Concomitant]
     Active Substance: DIAZEPAM
     Dosage: 5 MG, AS NEEDED (TAKE 1 TABLET BY MOUTH TWICE A DAY AS NEEDED DAY AS NEEDED)
     Route: 048
     Dates: start: 20100308
  6. ALENDRONATE SODIUM. [Concomitant]
     Active Substance: ALENDRONATE SODIUM
     Dosage: 70 MG, WEEKLY
     Route: 048
     Dates: start: 20170526
  7. D [Concomitant]
     Dosage: 2000 IU, DAILY
     Route: 048
     Dates: start: 20170526
  8. OXYCODONE AND ACETAMINOPHEN [Concomitant]
     Active Substance: ACETAMINOPHEN\OXYCODONE HYDROCHLORIDE
     Indication: PAIN
     Dosage: AS NEEDED (OXYCODONE 10?ACETAMINOPHEN 325 MG ORAL TABLET TAKE 1 TABLET EVERY 4 TO 6 HOURS AS NEEDED)
     Route: 048
     Dates: start: 20130219
  9. KLONOPIN [Concomitant]
     Active Substance: CLONAZEPAM
     Dosage: 1 DF, 1X/DAY (NIGHTLY AT BEDTIME)
     Route: 048
     Dates: start: 20100202
  10. ZANAFLEX [Concomitant]
     Active Substance: TIZANIDINE HYDROCHLORIDE
     Dosage: 10 MG, DAILY (TAKE 1 4 MG TABLET EVERY MORNING AND EVENING AND TAKE 1/2 TABLET BY MOUTH AT 6PM)
     Route: 048
     Dates: start: 20100413

REACTIONS (2)
  - Thinking abnormal [Unknown]
  - Intentional product use issue [Unknown]

NARRATIVE: CASE EVENT DATE: 2020
